FAERS Safety Report 15361351 (Version 2)
Quarter: 2018Q4

REPORT INFORMATION
  Report Type: Spontaneous
  Country: FR (occurrence: FR)
  Receive Date: 20180907
  Receipt Date: 20181212
  Transmission Date: 20190204
  Serious: Yes (Other)
  Sender: FDA-Public Use
  Company Number: FR-MYLANLABS-2018M1065788

PATIENT
  Age: 60 Year
  Sex: Female

DRUGS (1)
  1. IMATINIB. [Suspect]
     Active Substance: IMATINIB MESYLATE
     Indication: CHRONIC MYELOID LEUKAEMIA
     Dosage: 400 MG, QD
     Route: 065
     Dates: start: 200106, end: 200409

REACTIONS (3)
  - Adenocarcinoma of colon [Recovered/Resolved]
  - Second primary malignancy [Recovered/Resolved]
  - Rectal haemorrhage [Recovered/Resolved]
